FAERS Safety Report 12972350 (Version 1)
Quarter: 2016Q4

REPORT INFORMATION
  Report Type: Spontaneous
  Country: US (occurrence: US)
  Receive Date: 20161124
  Receipt Date: 20161124
  Transmission Date: 20170207
  Serious: No
  Sender: FDA-Public Use
  Company Number: US-PROSTRAKAN-2016-US-0152

PATIENT

DRUGS (2)
  1. ADVIL [Concomitant]
     Active Substance: IBUPROFEN
     Indication: PRODUCT USED FOR UNKNOWN INDICATION
     Dosage: UNKNOWN
     Route: 065
  2. SANCUSO [Suspect]
     Active Substance: GRANISETRON
     Indication: PROPHYLAXIS OF NAUSEA AND VOMITING
     Dosage: 1 PATCH ON FOR 3-5 DAYS
     Route: 062
     Dates: start: 20160225, end: 20160227

REACTIONS (5)
  - Nausea [Recovered/Resolved]
  - Pain [Recovered/Resolved]
  - Wrong technique in product usage process [Unknown]
  - Product adhesion issue [Unknown]
  - Inappropriate schedule of drug administration [Unknown]

NARRATIVE: CASE EVENT DATE: 20160225
